FAERS Safety Report 10619237 (Version 4)
Quarter: 2014Q4

REPORT INFORMATION
  Report Type: Spontaneous
  Country: JP (occurrence: JP)
  Receive Date: 20141202
  Receipt Date: 20141222
  Transmission Date: 20150529
  Serious: Yes (Other)
  Sender: FDA-Public Use
  Company Number: JP-B.I. PHARMACEUTICALS,INC./RIDGEFIELD-2014-BI-57535GD

PATIENT
  Age: 92 Year
  Sex: Male

DRUGS (2)
  1. PRADAXA [Suspect]
     Active Substance: DABIGATRAN ETEXILATE MESYLATE
     Indication: ATRIAL FIBRILLATION
     Dosage: 220 MG
     Route: 048
  2. ALTEPLASE [Suspect]
     Active Substance: ALTEPLASE
     Indication: CEREBRAL INFARCTION
     Route: 042

REACTIONS (6)
  - Quadriplegia [Unknown]
  - Eye movement disorder [Unknown]
  - Haemorrhagic transformation stroke [Recovered/Resolved]
  - Restlessness [Unknown]
  - Pneumonia aspiration [Unknown]
  - Aphasia [Unknown]

NARRATIVE: CASE EVENT DATE: 201406
